FAERS Safety Report 10393707 (Version 1)
Quarter: 2014Q3

REPORT INFORMATION
  Report Type: Spontaneous
  Country: BR (occurrence: BR)
  Receive Date: 20140819
  Receipt Date: 20140819
  Transmission Date: 20150326
  Serious: Yes (Hospitalization, Other)
  Sender: FDA-Public Use
  Company Number: BR-PFIZER INC-2014226430

PATIENT
  Age: 76 Year
  Sex: Female
  Weight: 72 kg

DRUGS (1)
  1. XALATAN [Suspect]
     Active Substance: LATANOPROST
     Indication: GLAUCOMA
     Dosage: 1 DROP IN EACH EYE (3 UG), 1X/DAY(ONE DROP IN BOTH EYES AT NIGHT AND THE NEXT DAY SHE USES 1 DROP IN
     Route: 047
     Dates: start: 1994

REACTIONS (6)
  - Diabetic foot [Unknown]
  - Diabetes mellitus [Unknown]
  - Glaucoma [Unknown]
  - Cataract [Unknown]
  - Gait disturbance [Unknown]
  - Hypertension [Unknown]
